FAERS Safety Report 20020224 (Version 5)
Quarter: 2022Q1

REPORT INFORMATION
  Report Type: Spontaneous
  Country: NO (occurrence: NO)
  Receive Date: 20211101
  Receipt Date: 20220209
  Transmission Date: 20220423
  Serious: Yes (Death, Hospitalization, Other)
  Sender: FDA-Public Use
  Company Number: NO-PFIZER INC-202101399537

PATIENT
  Age: 33 Year
  Sex: Female
  Weight: 166 kg

DRUGS (2)
  1. LORLATINIB [Suspect]
     Active Substance: LORLATINIB
     Indication: Lung adenocarcinoma
     Dosage: 100 MG, 1X/DAY
     Route: 048
     Dates: start: 20180514, end: 201808
  2. LORLATINIB [Suspect]
     Active Substance: LORLATINIB
     Dosage: 50 MG, 1X/DAY
     Route: 048
     Dates: start: 201808, end: 202104

REACTIONS (12)
  - Neoplasm progression [Fatal]
  - Mental impairment [Recovered/Resolved]
  - Delusion [Recovered/Resolved]
  - Panic attack [Recovered/Resolved]
  - Fear of death [Recovered/Resolved]
  - Anxiety [Recovered/Resolved]
  - Psychotic disorder [Recovered/Resolved]
  - Respiratory arrest [Recovered/Resolved]
  - Chest pain [Recovered/Resolved]
  - Dyspnoea [Recovered/Resolved]
  - Blood cholesterol increased [Recovered/Resolved]
  - Insomnia [Unknown]

NARRATIVE: CASE EVENT DATE: 20180601
